FAERS Safety Report 11145372 (Version 1)
Quarter: 2015Q2

REPORT INFORMATION
  Report Type: Spontaneous
  Country: US (occurrence: US)
  Receive Date: 20150526
  Receipt Date: 20150526
  Transmission Date: 20150821
  Serious: No
  Sender: FDA-Public Use
  Company Number: US-ELI_LILLY_AND_COMPANY-US201505006962

PATIENT
  Age: 70 Year
  Sex: Female

DRUGS (2)
  1. LANTUS [Concomitant]
     Active Substance: INSULIN GLARGINE
     Dosage: UNK, UNKNOWN
     Route: 065
  2. HUMALOG [Suspect]
     Active Substance: INSULIN LISPRO
     Indication: DIABETES MELLITUS
     Dosage: 7 U, QID
     Route: 065
     Dates: start: 201503

REACTIONS (4)
  - Hunger [Unknown]
  - Muscular weakness [Unknown]
  - Fatigue [Unknown]
  - Underdose [Unknown]

NARRATIVE: CASE EVENT DATE: 20150518
